FAERS Safety Report 4444378-1 (Version None)
Quarter: 2004Q3

REPORT INFORMATION
  Report Type: 
  Country: None (occurrence: None)
  Receive Date: 20040729
  Receipt Date: 20030626
  Transmission Date: 20050211
  Serious: Yes (Death)
  Sender: FDA-Public Use
  Company Number: 2003UW08224

PATIENT
  Age: 21 Year

DRUGS (3)
  1. ELAVIL [Suspect]
     Dates: start: 19990101
  2. DESOXYN [Suspect]
     Dates: start: 19990101
  3. ETHANOL [Suspect]
     Dates: start: 19990101

REACTIONS (1)
  - SUICIDE ATTEMPT [None]
